FAERS Safety Report 9268469 (Version 1)
Quarter: 2013Q2

REPORT INFORMATION
  Report Type: Report from Study
  Country: US (occurrence: US)
  Receive Date: 20130502
  Receipt Date: 20130502
  Transmission Date: 20140414
  Serious: Yes (Hospitalization)
  Sender: FDA-Public Use
  Company Number: US-CELGENEUS-163-21880-13042992

PATIENT
  Age: 72 Year
  Sex: Male
  Weight: 72.8 kg

DRUGS (3)
  1. REVLIMID [Suspect]
     Indication: DIFFUSE LARGE B-CELL LYMPHOMA REFRACTORY
     Dosage: 15 MILLIGRAM
     Route: 048
     Dates: start: 20130328, end: 20130405
  2. EVEROLIMUS [Suspect]
     Indication: PRODUCT USED FOR UNKNOWN INDICATION
     Dosage: 5 MILLIGRAM
     Route: 048
     Dates: start: 20130328, end: 20130405
  3. NEUPOGEN [Concomitant]
     Indication: PRODUCT USED FOR UNKNOWN INDICATION
     Route: 065

REACTIONS (7)
  - Cellulitis [Unknown]
  - Otitis externa [Not Recovered/Not Resolved]
  - Streptococcal infection [Unknown]
  - Pancytopenia [Unknown]
  - Neutropenia [Unknown]
  - Failure to thrive [Unknown]
  - Weight decreased [Unknown]
